FAERS Safety Report 17420280 (Version 1)
Quarter: 2020Q1

REPORT INFORMATION
  Report Type: Not Available
  Country: CA (occurrence: CA)
  Receive Date: 20200214
  Receipt Date: 20200214
  Transmission Date: 20200409
  Serious: Yes (Death, Hospitalization, Other)
  Sender: FDA-Public Use
  Company Number: CA-CELGENEUS-CAN-20200204087

PATIENT
  Age: 49 Year
  Sex: Female
  Weight: 71 kg

DRUGS (4)
  1. VENCLEXTA [Suspect]
     Active Substance: VENETOCLAX
     Indication: OFF LABEL USE
  2. AZACITIDINE. [Suspect]
     Active Substance: AZACITIDINE
     Indication: PRODUCT USED FOR UNKNOWN INDICATION
     Route: 065
  3. AZACITIDINE. [Suspect]
     Active Substance: AZACITIDINE
     Indication: OFF LABEL USE
  4. VENCLEXTA [Suspect]
     Active Substance: VENETOCLAX
     Indication: ACUTE MYELOID LEUKAEMIA
     Dosage: 400 MILLIGRAM?2 MONTH DURATION
     Route: 065

REACTIONS (14)
  - Atelectasis [Fatal]
  - Blast cells [Fatal]
  - Cytopenia [Fatal]
  - Red blood cell count increased [Fatal]
  - Hypotension [Fatal]
  - Lung opacity [Fatal]
  - Pneumonia [Fatal]
  - Acute myeloid leukaemia recurrent [Fatal]
  - Pleural effusion [Fatal]
  - Pulmonary mass [Fatal]
  - Sepsis [Fatal]
  - Gastrointestinal wall thickening [Fatal]
  - Polyneuropathy in malignant disease [Fatal]
  - Drug ineffective [Fatal]
